FAERS Safety Report 12947113 (Version 1)
Quarter: 2016Q4

REPORT INFORMATION
  Report Type: Spontaneous
  Country: US (occurrence: US)
  Receive Date: 20161116
  Receipt Date: 20161116
  Transmission Date: 20170207
  Serious: Yes (Hospitalization)
  Sender: FDA-Public Use
  Company Number: None

PATIENT
  Age: 64 Year
  Sex: Male
  Weight: 79.38 kg

DRUGS (19)
  1. MELANIC [Suspect]
     Active Substance: MELOXICAM
  2. NIACIN. [Concomitant]
     Active Substance: NIACIN
  3. HALOPERIDOL. [Suspect]
     Active Substance: HALOPERIDOL
  4. VITAMIN B12 [Concomitant]
     Active Substance: CYANOCOBALAMIN
  5. STELAZINE [Suspect]
     Active Substance: TRIFLUOPERAZINE HYDROCHLORIDE
  6. LOXITANE [Suspect]
     Active Substance: LOXAPINE SUCCINATE
  7. LITHIUM. [Suspect]
     Active Substance: LITHIUM
  8. MELATONIN [Concomitant]
     Active Substance: MELATONIN
  9. VITAMIN D3 [Concomitant]
     Active Substance: CHOLECALCIFEROL
  10. VALENTAN [Concomitant]
  11. ABILIFY [Suspect]
     Active Substance: ARIPIPRAZOLE
  12. VITAMIN C [Concomitant]
     Active Substance: ASCORBIC ACID
  13. MULTI VITAMIN [Concomitant]
     Active Substance: VITAMINS
  14. RISPERIDONE PFIZER [Suspect]
     Active Substance: RISPERIDONE
     Indication: PRODUCT USED FOR UNKNOWN INDICATION
     Dosage: RISPERIDONE 6ML OR 6MG - 2 VIALS - PO - HS, OTHERS SOMETIMES BY INJECTION, FORCED
     Route: 048
     Dates: start: 201607, end: 20160816
  15. CALCIUM CARPONEL [Concomitant]
  16. AMINO ACID [Concomitant]
     Active Substance: AMINO ACIDS
  17. SEROQUEL [Suspect]
     Active Substance: QUETIAPINE FUMARATE
  18. VITAMIN E [Concomitant]
     Active Substance: .ALPHA.-TOCOPHEROL
  19. CREATINE [Concomitant]
     Active Substance: CREATINE

REACTIONS (3)
  - Tachyphrenia [None]
  - Male orgasmic disorder [None]
  - Semen volume decreased [None]

NARRATIVE: CASE EVENT DATE: 201608
